FAERS Safety Report 13561612 (Version 2)
Quarter: 2017Q2

REPORT INFORMATION
  Report Type: Report from Study
  Country: US (occurrence: US)
  Receive Date: 20170518
  Receipt Date: 20170613
  Transmission Date: 20170830
  Serious: Yes (Other)
  Sender: FDA-Public Use
  Company Number: US-GILEAD-2017-0273007

PATIENT
  Age: 22 Year
  Sex: Female

DRUGS (1)
  1. SOFOSBUVIR W/VELPATASVIR [Suspect]
     Active Substance: SOFOSBUVIR\VELPATASVIR
     Indication: CHRONIC HEPATITIS C
     Dosage: 1 DF, UNK
     Route: 048

REACTIONS (7)
  - Vomiting [Unknown]
  - Alopecia [Not Recovered/Not Resolved]
  - Nausea [Unknown]
  - Inappropriate schedule of drug administration [Recovered/Resolved]
  - Loss of consciousness [Recovered/Resolved]
  - Somnolence [Not Recovered/Not Resolved]
  - Headache [Unknown]

NARRATIVE: CASE EVENT DATE: 20170506
